FAERS Safety Report 15497332 (Version 1)
Quarter: 2018Q4

REPORT INFORMATION
  Report Type: Spontaneous
  Country: US (occurrence: US)
  Receive Date: 20181013
  Receipt Date: 20181013
  Transmission Date: 20190205
  Serious: Yes (Hospitalization, Disabling)
  Sender: FDA-Public Use
  Company Number: None

PATIENT
  Age: 51 Year
  Sex: Male
  Weight: 77.2 kg

DRUGS (4)
  1. PIPERACILLIN AND TAZOBACTAM [Suspect]
     Active Substance: PIPERACILLIN SODIUM\TAZOBACTAM SODIUM
     Indication: SEPSIS
     Dates: start: 20180609, end: 20180611
  2. ALBUMIN [Concomitant]
     Active Substance: ALBUMIN HUMAN
     Dates: start: 20180610, end: 20180610
  3. CALCIUM GLUCONATE. [Concomitant]
     Active Substance: CALCIUM GLUCONATE
     Dates: start: 20180609, end: 20180609
  4. VANCOMYCIN [Suspect]
     Active Substance: VANCOMYCIN
     Indication: SEPSIS
     Route: 042
     Dates: start: 20180609, end: 20180611

REACTIONS (2)
  - Blood creatinine increased [None]
  - Dialysis [None]

NARRATIVE: CASE EVENT DATE: 20180609
